FAERS Safety Report 4778103-1 (Version None)
Quarter: 2005Q3

REPORT INFORMATION
  Report Type: 
  Country: None (occurrence: None)
  Receive Date: 20050926
  Receipt Date: 20050914
  Transmission Date: 20060218
  Serious: Yes (Death)
  Sender: FDA-Public Use
  Company Number: US-JNJFOC-20031002406

PATIENT
  Sex: Female

DRUGS (12)
  1. INFLIXIMAB [Suspect]
     Indication: RHEUMATOID ARTHRITIS
     Route: 042
  2. METHOTREXATE [Concomitant]
  3. ARAVA [Concomitant]
  4. CELEBREX [Concomitant]
  5. FOLIC ACID [Concomitant]
  6. CALCIUM WITH VITAMIN D [Concomitant]
  7. CALCIUM WITH VITAMIN D [Concomitant]
  8. CALCIUM WITH VITAMIN D [Concomitant]
  9. MAGNESIUM [Concomitant]
  10. TYLENOL ARTHRITIS [Concomitant]
  11. LORTAB [Concomitant]
  12. LORTAB [Concomitant]

REACTIONS (1)
  - RESPIRATORY ARREST [None]
